FAERS Safety Report 9550732 (Version 1)
Quarter: 2013Q3

REPORT INFORMATION
  Report Type: Spontaneous
  Country: US (occurrence: US)
  Receive Date: 20130924
  Receipt Date: 20130924
  Transmission Date: 20140515
  Serious: No
  Sender: FDA-Public Use
  Company Number: US-SANOFI-AVENTIS-2013SA047007

PATIENT
  Age: 61 Year
  Sex: Female
  Weight: 99 kg

DRUGS (16)
  1. AUBAGIO [Suspect]
     Indication: MULTIPLE SCLEROSIS
     Route: 048
     Dates: start: 20130128
  2. AMITRIPTYLINE [Concomitant]
  3. BACLOFEN [Concomitant]
  4. GABAPENTIN [Concomitant]
  5. ESTRACE VAGINAL CREAM [Concomitant]
  6. ESTRADIOL [Concomitant]
  7. ATENOLOL [Concomitant]
  8. OMEPRAZOLE [Concomitant]
  9. SIMVASTATIN [Concomitant]
  10. ALBUTEROL SULFATE [Concomitant]
     Dosage: 8.5 GM AS NEEDED
  11. FLUTICASONE [Concomitant]
     Dosage: 220 MCG/ACTUATION INHALER AS NEEDED
  12. DOCOSAHEXANOIC ACID [Concomitant]
     Route: 048
  13. FERROUS SULFATE [Concomitant]
     Route: 048
  14. CALCIUM CARBONATE [Concomitant]
     Route: 048
  15. VITAMIN D3 [Concomitant]
     Route: 048
  16. CARBOXYMETHYLCELLULOSE SODIUM [Concomitant]

REACTIONS (2)
  - Tremor [Unknown]
  - Alopecia [Not Recovered/Not Resolved]
